FAERS Safety Report 12119677 (Version 1)
Quarter: 2016Q1

REPORT INFORMATION
  Report Type: Report from Study
  Country: CA (occurrence: CA)
  Receive Date: 20160226
  Receipt Date: 20160226
  Transmission Date: 20160526
  Serious: Yes (Other)
  Sender: FDA-Public Use
  Company Number: CA-JNJFOC-20160217106

PATIENT
  Age: 47 Year
  Sex: Female
  Weight: 75.7 kg

DRUGS (2)
  1. REMICADE [Suspect]
     Active Substance: INFLIXIMAB
     Indication: CROHN^S DISEASE
     Route: 042
  2. DILAUDID [Concomitant]
     Active Substance: HYDROMORPHONE HYDROCHLORIDE
     Route: 065

REACTIONS (6)
  - Flank pain [Unknown]
  - Productive cough [Unknown]
  - Nasal congestion [Unknown]
  - Hysterectomy [Recovering/Resolving]
  - Suprapubic pain [Unknown]
  - Dysuria [Unknown]

NARRATIVE: CASE EVENT DATE: 20160112
